FAERS Safety Report 18107262 (Version 1)
Quarter: 2020Q3

REPORT INFORMATION
  Report Type: Spontaneous
  Country: US (occurrence: US)
  Receive Date: 20200803
  Receipt Date: 20200803
  Transmission Date: 20201103
  Serious: No
  Sender: FDA-Public Use
  Company Number: None

PATIENT

DRUGS (2)
  1. KIRKLAND SIGNATURE ACID CONTROLLER [Suspect]
     Active Substance: FAMOTIDINE
  2. ACID CONTROLLER ORIGINAL STRENGTH [Suspect]
     Active Substance: FAMOTIDINE

REACTIONS (2)
  - Product origin unknown [None]
  - Product use complaint [None]
